FAERS Safety Report 6266436-1 (Version None)
Quarter: 2009Q3

REPORT INFORMATION
  Report Type: 
  Country: None (occurrence: None)
  Receive Date: 20090709
  Receipt Date: 20090626
  Transmission Date: 20100115
  Serious: Yes (Other)
  Sender: FDA-Public Use
  Company Number: DEP_00268_2009

PATIENT
  Sex: Female
  Weight: 111.1313 kg

DRUGS (16)
  1. METFORMIN HYDROCHLORIDE [Suspect]
     Indication: BLOOD TESTOSTERONE ABNORMAL
     Dosage: 1000 MG ORAL
     Route: 048
     Dates: start: 20040101
  2. METFORMIN HYDROCHLORIDE [Suspect]
     Indication: OFF LABEL USE
     Dosage: 1000 MG ORAL
     Route: 048
     Dates: start: 20040101
  3. WELLBUTRIN XL [Suspect]
     Indication: DEPRESSION
     Dosage: 150 MG ORAL
     Route: 048
     Dates: start: 20040101
  4. ADVAIR HFA [Suspect]
     Indication: BRONCHITIS
     Dosage: 2 DF RESPIRATORY (INHALATION)
     Route: 055
     Dates: start: 20090201
  5. PRIMIDONE [Suspect]
     Indication: EPILEPSY
     Dosage: DF ORAL, 250 MG TID OR QID ORAL
     Route: 048
  6. PRIMIDONE [Suspect]
     Indication: EPILEPSY
     Dosage: DF ORAL, 250 MG TID OR QID ORAL
     Route: 048
     Dates: start: 20010101
  7. LITHIUM CARBONATE [Suspect]
     Indication: MOOD SWINGS
     Dosage: 600 MG ORAL
     Route: 048
     Dates: start: 20040101
  8. ESTRADIOL [Suspect]
     Indication: HYSTERECTOMY
     Dosage: 4 MG ORAL
     Route: 048
     Dates: start: 20060101
  9. DICYCLOMINE HYDROCHLORIDE [Suspect]
     Indication: DYSPEPSIA
     Dosage: 40 MG ORAL
     Route: 048
     Dates: start: 20070101
  10. RELPAX [Suspect]
     Indication: MIGRAINE
     Dosage: 20 MG ORAL
     Route: 048
     Dates: start: 20030101
  11. PREVACID [Suspect]
     Indication: DYSPEPSIA
     Dosage: 60 MG ORAL
     Route: 048
     Dates: start: 20030101
  12. BUPROPION HYDROCHLORIDE [Suspect]
     Indication: SEASONAL AFFECTIVE DISORDER
     Dosage: 75 MG ORAL
     Route: 048
     Dates: start: 20010101
  13. CLOTRIMAZOLE [Suspect]
     Indication: FUNGAL INFECTION
     Dosage: DF
     Dates: start: 20070101
  14. MICONAZOLE [Suspect]
     Indication: NAIL INFECTION
     Dosage: DF TOPICAL
     Route: 061
     Dates: start: 20080101
  15. XOPENEX [Suspect]
     Indication: ASTHMA
     Dosage: 1 DF, 1 PUFF DAILY RESPIRATORY (INHALATION)
     Route: 055
     Dates: start: 20080601
  16. CARAFATE [Suspect]
     Indication: DYSPEPSIA
     Dosage: 4 G ORAL
     Route: 048
     Dates: start: 20080101

REACTIONS (6)
  - BLINDNESS TRANSIENT [None]
  - DEAFNESS TRANSITORY [None]
  - FEELING ABNORMAL [None]
  - HYPERACUSIS [None]
  - LOSS OF CONSCIOUSNESS [None]
  - SWELLING [None]
